FAERS Safety Report 9234542 (Version 3)
Quarter: 2013Q2

REPORT INFORMATION
  Report Type: Spontaneous
  Country: JP (occurrence: JP)
  Receive Date: 20130416
  Receipt Date: 20130625
  Transmission Date: 20140414
  Serious: Yes (Life-Threatening, Hospitalization)
  Sender: FDA-Public Use
  Company Number: JP-GLAXOSMITHKLINE-B0883304A

PATIENT
  Age: 28 Year
  Sex: Female

DRUGS (8)
  1. ZANTAC [Suspect]
     Indication: GASTRITIS PROPHYLAXIS
     Dosage: 150MG TWICE PER DAY
     Route: 048
     Dates: start: 20070423, end: 20070608
  2. PL [Suspect]
     Indication: NASOPHARYNGITIS
     Route: 048
     Dates: start: 20070601, end: 20070603
  3. LECTISOL [Suspect]
     Indication: INFLAMMATION
     Dosage: 25MG THREE TIMES PER DAY
     Route: 048
     Dates: start: 20070521, end: 20070601
  4. MUCOSTA [Suspect]
     Indication: GASTRITIS PROPHYLAXIS
     Dosage: 100MG THREE TIMES PER DAY
     Route: 048
     Dates: start: 20070423, end: 20070608
  5. LOXONIN [Concomitant]
     Route: 048
     Dates: start: 200606
  6. CELESTAMINE [Concomitant]
     Route: 048
     Dates: start: 200606
  7. PREDONINE [Concomitant]
     Route: 048
     Dates: start: 200606
  8. MUCODYNE [Concomitant]
     Indication: NASOPHARYNGITIS
     Route: 048
     Dates: start: 200706

REACTIONS (20)
  - Toxic epidermal necrolysis [Recovered/Resolved]
  - Erythema [Unknown]
  - Skin erosion [Unknown]
  - Blister [Unknown]
  - Pyrexia [Unknown]
  - Generalised erythema [Unknown]
  - Mucous membrane disorder [Unknown]
  - Respiratory failure [Unknown]
  - Pharyngeal erosion [Unknown]
  - Upper airway obstruction [Unknown]
  - Oral mucosa erosion [Unknown]
  - Conjunctivitis [Unknown]
  - Adhesion [Unknown]
  - Obstructive airways disorder [Unknown]
  - Generalised erythema [Unknown]
  - Skin erosion [Unknown]
  - Nasopharyngitis [Unknown]
  - Skin exfoliation [Unknown]
  - Pain [Unknown]
  - Scar [Not Recovered/Not Resolved]
